FAERS Safety Report 11545859 (Version 1)
Quarter: 2015Q3

REPORT INFORMATION
  Report Type: Spontaneous
  Country: JP (occurrence: JP)
  Receive Date: 20150924
  Receipt Date: 20150924
  Transmission Date: 20151125
  Serious: Yes (Other)
  Sender: FDA-Public Use
  Company Number: JP-GLAXOSMITHKLINE-A201409103

PATIENT
  Sex: Female

DRUGS (5)
  1. RETROVIR [Concomitant]
     Active Substance: ZIDOVUDINE
     Dosage: 2 ML, UNK
     Dates: start: 20130626
  2. LAMIVUDINE. [Suspect]
     Active Substance: LAMIVUDINE
     Indication: HIV INFECTION
     Dosage: 300 MG, UNK
     Route: 048
     Dates: start: 20130122, end: 20131016
  3. ZIDOVUDINE. [Suspect]
     Active Substance: ZIDOVUDINE
     Indication: HIV INFECTION
     Dosage: 400 MG, UNK
     Route: 048
     Dates: start: 20130122, end: 20131016
  4. PREZISTANAIVE [Concomitant]
     Active Substance: DARUNAVIR
     Indication: HIV INFECTION
     Dosage: 800 MG, UNK
     Dates: start: 20130122, end: 20131016
  5. NORVIR [Concomitant]
     Active Substance: RITONAVIR
     Indication: HIV INFECTION
     Dosage: 100 MG, UNK
     Dates: start: 20130122, end: 20131016

REACTIONS (2)
  - Periventricular leukomalacia [Unknown]
  - Foetal exposure during pregnancy [Unknown]
